FAERS Safety Report 15557129 (Version 1)
Quarter: 2018Q4

REPORT INFORMATION
  Report Type: Spontaneous
  Country: RU (occurrence: RU)
  Receive Date: 20181026
  Receipt Date: 20181026
  Transmission Date: 20190205
  Serious: Yes (Other)
  Sender: FDA-Public Use
  Company Number: RU-PFIZER INC-2018432625

PATIENT
  Age: 8 Year
  Sex: Male

DRUGS (3)
  1. VFEND [Suspect]
     Active Substance: VORICONAZOLE
     Indication: ASPERGILLUS INFECTION
     Dosage: 10 MG/KG
  2. VFEND [Suspect]
     Active Substance: VORICONAZOLE
     Dosage: UNK
  3. VFEND [Suspect]
     Active Substance: VORICONAZOLE
     Indication: ASPERGILLUS INFECTION
     Dosage: UNK
     Route: 051

REACTIONS (3)
  - Aspergillus infection [Recovering/Resolving]
  - Condition aggravated [Recovering/Resolving]
  - Drug ineffective [Recovering/Resolving]
